FAERS Safety Report 8602154-X (Version None)
Quarter: 2012Q3

REPORT INFORMATION
  Report Type: 
  Country: None (occurrence: None)
  Receive Date: 20120817
  Receipt Date: 20120709
  Transmission Date: 20120928
  Serious: Yes (Other)
  Sender: FDA-Public Use
  Company Number: GR-JNJFOC-20120705374

PATIENT
  Sex: Female

DRUGS (2)
  1. DOXORUBICIN HCL [Suspect]
     Indication: OVARIAN CANCER
     Route: 065
  2. TRABECTEDIN [Suspect]
     Indication: OVARIAN CANCER
     Dosage: CYCLES 1-2
     Route: 042

REACTIONS (2)
  - ILEUS PARALYTIC [None]
  - RENAL FAILURE [None]
